FAERS Safety Report 11619871 (Version 1)
Quarter: 2015Q4

REPORT INFORMATION
  Report Type: Report from Study
  Country: KR (occurrence: KR)
  Receive Date: 20151012
  Receipt Date: 20151012
  Transmission Date: 20160304
  Serious: Yes (Other)
  Sender: FDA-Public Use
  Company Number: KR-OTSUKA-JP-2014-17006

PATIENT

DRUGS (7)
  1. CARVEDILOL. [Concomitant]
     Active Substance: CARVEDILOL
     Indication: HYPONATRAEMIA
     Dosage: 12.5 MG, QD
     Route: 048
     Dates: start: 20130610
  2. MEGESTROL [Concomitant]
     Active Substance: MEGESTROL
     Indication: HYPONATRAEMIA
     Dosage: 10 ML, QD
     Route: 048
     Dates: start: 20140424
  3. TOLVAPTAN [Suspect]
     Active Substance: TOLVAPTAN
     Indication: HYPONATRAEMIA
     Dosage: 15 MG, QD
     Route: 065
     Dates: start: 20140814
  4. ASPIRIN. [Concomitant]
     Active Substance: ASPIRIN
     Indication: HYPONATRAEMIA
     Dosage: 50 MG, QD
     Route: 048
     Dates: start: 20130610
  5. TAMSULOSIN [Concomitant]
     Active Substance: TAMSULOSIN
     Indication: HYPONATRAEMIA
     Dosage: 0.2 MG, QD
     Route: 048
     Dates: start: 20130204
  6. VALSARTAN. [Concomitant]
     Active Substance: VALSARTAN
     Indication: HYPONATRAEMIA
     Dosage: 40 MG, QD
     Route: 048
     Dates: start: 20140610
  7. GINEXIN-F [Concomitant]
     Indication: HYPONATRAEMIA
     Dosage: 160 MG, QD
     Route: 048
     Dates: start: 20130909

REACTIONS (1)
  - Hyponatraemia [Recovered/Resolved]

NARRATIVE: CASE EVENT DATE: 20140818
